FAERS Safety Report 8603334 (Version 3)
Quarter: 2017Q4

REPORT INFORMATION
  Report Type: Spontaneous
  Country: US (occurrence: US)
  Receive Date: 20120607
  Receipt Date: 20171002
  Transmission Date: 20180321
  Serious: Yes (Hospitalization, Other)
  Sender: FDA-Public Use
  Company Number: US-ROCHE-1074549

PATIENT
  Age: 66 Year
  Sex: Female

DRUGS (6)
  1. PRILOSEC [Concomitant]
     Active Substance: OMEPRAZOLE MAGNESIUM
     Route: 065
     Dates: start: 200606, end: 200905
  2. PLAVIX [Concomitant]
     Active Substance: CLOPIDOGREL BISULFATE
     Route: 065
     Dates: start: 200612, end: 200903
  3. BONIVA [Suspect]
     Active Substance: IBANDRONATE SODIUM
     Indication: OSTEOPOROSIS
     Route: 048
     Dates: start: 200706, end: 201001
  4. FOSAMAX [Suspect]
     Active Substance: ALENDRONATE SODIUM
     Route: 048
     Dates: start: 200106, end: 200706
  5. RANITIDINE. [Concomitant]
     Active Substance: RANITIDINE
     Indication: GASTROOESOPHAGEAL REFLUX DISEASE
     Route: 065
     Dates: start: 2009
  6. FOSAMAX [Suspect]
     Active Substance: ALENDRONATE SODIUM
     Indication: OSTEOPOROSIS
     Route: 048
     Dates: start: 199709, end: 200106

REACTIONS (3)
  - Femur fracture [Unknown]
  - Anxiety [Unknown]
  - Emotional distress [Unknown]

NARRATIVE: CASE EVENT DATE: 20100113
